FAERS Safety Report 5195519-2 (Version None)
Quarter: 2007Q1

REPORT INFORMATION
  Report Type: 
  Country: None (occurrence: None)
  Receive Date: 20070102
  Receipt Date: 20061222
  Transmission Date: 20070707
  Serious: Yes (Other)
  Sender: FDA-Public Use
  Company Number: US-JNJFOC-20061206580

PATIENT
  Sex: Female
  Weight: 70.31 kg

DRUGS (1)
  1. DURAGESIC-100 [Suspect]
     Indication: FIBROMYALGIA
     Route: 062

REACTIONS (8)
  - AMNESIA [None]
  - APPLICATION SITE DISCOLOURATION [None]
  - ARTHRITIS [None]
  - FALL [None]
  - HEAD INJURY [None]
  - HEADACHE [None]
  - INTERVERTEBRAL DISC PROTRUSION [None]
  - VISUAL DISTURBANCE [None]
